FAERS Safety Report 5166023-2 (Version None)
Quarter: 2006Q4

REPORT INFORMATION
  Report Type: 
  Country: None (occurrence: None)
  Receive Date: 20061128
  Receipt Date: 20061117
  Transmission Date: 20070319
  Serious: Yes (Other)
  Sender: FDA-Public Use
  Company Number: S06-USA-04394-01

PATIENT
  Age: 37 Year
  Sex: Female

DRUGS (5)
  1. LEXAPRO [Suspect]
     Indication: ANXIETY
     Dosage: 10 MG QD PO
     Route: 048
     Dates: start: 20061012, end: 20061020
  2. LEXAPRO [Suspect]
     Indication: DEPRESSION
     Dosage: 10 MG QD PO
     Route: 048
     Dates: start: 20061012, end: 20061020
  3. XANAX [Concomitant]
  4. NEURONTIN [Concomitant]
  5. AMITRIPTYLINE HCL [Concomitant]

REACTIONS (4)
  - AMNESIA [None]
  - GRAND MAL CONVULSION [None]
  - HALLUCINATION, VISUAL [None]
  - LOSS OF CONSCIOUSNESS [None]
